FAERS Safety Report 8034545 (Version 2)
Quarter: 2013Q2

REPORT INFORMATION
  Report Type: Spontaneous
  Country: US (occurrence: None)
  Receive Date: 20110707
  Receipt Date: 20120705
  Transmission Date: 20140414
  Serious: Yes (Hospitalization, Other)
  Sender: FDA-Public Use
  Company Number: US-CYPR-2011-000014

PATIENT
  Age: 71 Year
  Sex: Female
  Weight: 56 kg

DRUGS (7)
  1. CLOPIDOGREL [Suspect]
     Indication: ANTIPLATELET THERAPY
     Dosage: (75 MG QD ORAL)
     Route: 048
     Dates: start: 20110224, end: 20110411
  2. ASPIRIN [Suspect]
     Indication: CORONARY ARTERY DISEASE
     Dosage: (81 MG QD ORAL) ; (325 MG QD ORAL)
     Route: 048
     Dates: start: 20100608
  3. RANEXA [Concomitant]
  4. COREG [Concomitant]
  5. CRESTOR [Concomitant]
  6. FAMOTIDINE [Concomitant]
  7. CYPHER STENT [Concomitant]

REACTIONS (1)
  - HUMERUS FRACTURE [None]
